FAERS Safety Report 8127245-1 (Version None)
Quarter: 2012Q1

REPORT INFORMATION
  Report Type: 
  Country: None (occurrence: None)
  Receive Date: 20120210
  Receipt Date: 20120207
  Transmission Date: 20120608
  Serious: Yes (Hospitalization, Other)
  Sender: FDA-Public Use
  Company Number: RU-BAYER-201035285GPV

PATIENT
  Age: 64 Year
  Sex: Male

DRUGS (3)
  1. NEXAVAR [Suspect]
     Dosage: 400 MG, BID
     Route: 048
     Dates: start: 20110101
  2. NEXAVAR [Suspect]
     Dosage: 400 MG, QD
     Route: 048
     Dates: start: 20101230, end: 20110101
  3. NEXAVAR [Suspect]
     Indication: HEPATIC NEOPLASM MALIGNANT
     Dosage: 400 MG, BID
     Route: 048
     Dates: start: 20100717, end: 20101229

REACTIONS (18)
  - DIARRHOEA [None]
  - ERYTHEMA [None]
  - RASH [None]
  - PALMAR ERYTHEMA [None]
  - ASCITES [None]
  - PALMAR-PLANTAR ERYTHRODYSAESTHESIA SYNDROME [None]
  - CONTUSION [None]
  - INSOMNIA [None]
  - ANGINA PECTORIS [None]
  - ASTHENIA [None]
  - HYPERKERATOSIS [None]
  - DEHYDRATION [None]
  - ALOPECIA [None]
  - PRURITUS [None]
  - DIZZINESS [None]
  - BODY TEMPERATURE INCREASED [None]
  - THROMBOCYTOPENIA [None]
  - FLATULENCE [None]
